FAERS Safety Report 13748586 (Version 11)
Quarter: 2018Q2

REPORT INFORMATION
  Report Type: Spontaneous
  Country: US (occurrence: US)
  Receive Date: 20170713
  Receipt Date: 20180607
  Transmission Date: 20180711
  Serious: Yes (Hospitalization, Congenital Anomaly, Other)
  Sender: FDA-Public Use
  Company Number: PHEH2017US021204

PATIENT
  Age: 3 Month
  Sex: Female

DRUGS (1)
  1. ZOFRAN [Suspect]
     Active Substance: ONDANSETRON HYDROCHLORIDE
     Indication: FOETAL EXPOSURE DURING PREGNANCY
     Route: 064

REACTIONS (70)
  - Tricuspid valve incompetence [Unknown]
  - Pneumonia [Unknown]
  - Sepsis [Unknown]
  - Hyperkalaemia [Unknown]
  - Haemorrhage intracranial [Unknown]
  - Foetal exposure during pregnancy [Unknown]
  - Asthma [Unknown]
  - Premature baby [Unknown]
  - Intraventricular haemorrhage [Unknown]
  - Hyperbilirubinaemia [Unknown]
  - Pulmonary dysmaturity syndrome [Unknown]
  - Anaemia [Unknown]
  - Cough [Recovered/Resolved]
  - Ecchymosis [Unknown]
  - Viral infection [Unknown]
  - Adenovirus infection [Unknown]
  - Dysmorphism [Unknown]
  - Hypoxia [Recovered/Resolved]
  - Developmental delay [Unknown]
  - Lung hyperinflation [Unknown]
  - Injury [Unknown]
  - Nasal congestion [Unknown]
  - Upper respiratory tract infection [Unknown]
  - Body tinea [Unknown]
  - Dehydration [Unknown]
  - Atrial septal defect [Unknown]
  - Low birth weight baby [Unknown]
  - Respiratory syncytial virus bronchiolitis [Unknown]
  - Bradycardia [Unknown]
  - Cardiac murmur [Unknown]
  - Tonsillar hypertrophy [Unknown]
  - Bronchopulmonary dysplasia [Recovering/Resolving]
  - Neutropenia [Unknown]
  - Pleural effusion [Unknown]
  - Leukopenia [Unknown]
  - Sleep apnoea syndrome [Unknown]
  - Wheezing [Unknown]
  - Ear pain [Unknown]
  - Pyrexia [Unknown]
  - Rash [Unknown]
  - Constipation [Unknown]
  - Candida nappy rash [Unknown]
  - Patent ductus arteriosus [Unknown]
  - Left-to-right cardiac shunt [Unknown]
  - Left atrial enlargement [Unknown]
  - Conjunctivitis bacterial [Unknown]
  - Retinopathy of prematurity [Unknown]
  - Pulmonary interstitial emphysema syndrome [Unknown]
  - Jaundice [Unknown]
  - Rhinovirus infection [Unknown]
  - Otitis media acute [Unknown]
  - Rhinitis allergic [Unknown]
  - Atelectasis [Unknown]
  - Adenoidal hypertrophy [Unknown]
  - Staphylococcal infection [Recovered/Resolved]
  - Interstitial lung disease [Unknown]
  - Sinus arrest [Unknown]
  - Bronchiolitis [Unknown]
  - Tachypnoea [Unknown]
  - Dysphagia [Unknown]
  - Diarrhoea [Unknown]
  - Speech disorder [Unknown]
  - Congenital pulmonary hypertension [Recovered/Resolved]
  - Neonatal respiratory distress syndrome [Not Recovered/Not Resolved]
  - Cerebral haemorrhage [Recovered/Resolved]
  - Klebsiella bacteraemia [Recovered/Resolved]
  - Mitral valve incompetence [Unknown]
  - Gastrooesophageal reflux disease [Unknown]
  - Bronchitis [Unknown]
  - Snoring [Unknown]

NARRATIVE: CASE EVENT DATE: 201307
